FAERS Safety Report 8360958-5 (Version None)
Quarter: 2012Q2

REPORT INFORMATION
  Report Type: 
  Country: None (occurrence: None)
  Receive Date: 20120515
  Receipt Date: 20120511
  Transmission Date: 20120825
  Serious: Yes (Hospitalization)
  Sender: FDA-Public Use
  Company Number: US-ROCHE-1058030

PATIENT
  Sex: Male
  Weight: 0.844 kg

DRUGS (7)
  1. FISH OIL [Concomitant]
     Route: 048
  2. TARCEVA [Suspect]
     Indication: HEPATIC NEOPLASM MALIGNANT
     Dosage: LAST DOSE PRIOR TO SAE: 02/APR/2012
     Route: 048
     Dates: start: 20110809
  3. ACTOS [Concomitant]
     Route: 048
  4. VYTORIN [Concomitant]
     Dosage: 10/40 OUNCE
     Route: 048
  5. ASPIRIN [Concomitant]
     Route: 048
  6. AVASTIN [Suspect]
     Indication: HEPATIC NEOPLASM MALIGNANT
     Dosage: LAST DOSE PRIOR TO SAE: 21/MAR/2012
     Route: 042
     Dates: start: 20110809
  7. INDOMETHACIN [Concomitant]
     Route: 048

REACTIONS (2)
  - ATRIAL FIBRILLATION [None]
  - FATIGUE [None]
